FAERS Safety Report 7243042-3 (Version None)
Quarter: 2011Q1

REPORT INFORMATION
  Report Type: 
  Country: None (occurrence: None)
  Receive Date: 20110125
  Receipt Date: 20101025
  Transmission Date: 20110831
  Serious: No
  Sender: FDA-Public Use
  Company Number: US-AMGEN-USASP2010001316

PATIENT
  Sex: Female

DRUGS (3)
  1. ENBREL [Concomitant]
  2. PROLIA [Suspect]
     Indication: OSTEOPOROSIS POSTMENOPAUSAL
     Dosage: 60 MG, UNK
     Dates: start: 20101001
  3. METHADONE [Concomitant]

REACTIONS (2)
  - MUSCLE SPASMS [None]
  - PAIN [None]
